FAERS Safety Report 26215777 (Version 1)
Quarter: 2025Q4

REPORT INFORMATION
  Report Type: Spontaneous
  Country: CN (occurrence: CN)
  Receive Date: 20251231
  Receipt Date: 20251231
  Transmission Date: 20260117
  Serious: Yes (Hospitalization, Other)
  Sender: BAXTER
  Company Number: None

PATIENT
  Age: 71 Year
  Sex: Female
  Weight: 39 kg

DRUGS (13)
  1. CYCLOPHOSPHAMIDE [Suspect]
     Active Substance: CYCLOPHOSPHAMIDE
     Indication: Diffuse large B-cell lymphoma
     Dosage: 0.4 G, EVERY 8 DAYS (D1 AND D8)
     Route: 042
     Dates: start: 20251202, end: 20251209
  2. SODIUM CHLORIDE [Suspect]
     Active Substance: SODIUM CHLORIDE
     Dosage: 40 ML, EVERY 8 DAYS (D1 AND D8) (EPIRUBICIN HYDROCHLORIDE + 0.9% SODIUM CHLORIDE)
     Route: 041
     Dates: start: 20251202, end: 20251209
  3. SODIUM CHLORIDE [Suspect]
     Active Substance: SODIUM CHLORIDE
     Dosage: 20 ML, QD (D1) (VINCRISTINE + 0.9% SODIUM CHLORIDE)
     Route: 042
     Dates: start: 20251202, end: 20251202
  4. RITUXIMAB [Suspect]
     Active Substance: RITUXIMAB
     Indication: Diffuse large B-cell lymphoma
     Dosage: 500 MG, QD (D0)
     Route: 041
     Dates: start: 20251201, end: 20251201
  5. EPIRUBICIN HYDROCHLORIDE [Suspect]
     Active Substance: EPIRUBICIN HYDROCHLORIDE
     Indication: Diffuse large B-cell lymphoma
     Dosage: 40 MG, EVERY 8 DAYS (D1 AND D8)
     Route: 041
     Dates: start: 20251202, end: 20251209
  6. VINCRISTINE SULFATE [Suspect]
     Active Substance: VINCRISTINE SULFATE
     Indication: Diffuse large B-cell lymphoma
     Dosage: 2 MG, QD (D1)
     Route: 042
     Dates: start: 20251202, end: 20251202
  7. BEVACIZUMAB [Suspect]
     Active Substance: BEVACIZUMAB
     Indication: Diffuse large B-cell lymphoma
     Dosage: 200 MG, QD (PLEURAL PERFUSION)
     Route: 034
     Dates: start: 20251206, end: 20251206
  8. CISPLATIN [Suspect]
     Active Substance: CISPLATIN
     Indication: Diffuse large B-cell lymphoma
     Dosage: 60 MG, QD
     Route: 034
     Dates: start: 20251206, end: 20251206
  9. SODIUM CHLORIDE [Suspect]
     Active Substance: SODIUM CHLORIDE
     Indication: Medication dilution
     Dosage: 500 ML, QD (D0) (RITUXIMAB + 0.9% SODIUM CHLORIDE)
     Route: 041
     Dates: start: 20251201, end: 20251201
  10. SODIUM CHLORIDE [Suspect]
     Active Substance: SODIUM CHLORIDE
     Dosage: 20 ML, QD (CISPLATIN + 0.9% SODIUM CHLORIDE)
     Route: 034
     Dates: start: 20251206, end: 20251206
  11. SODIUM CHLORIDE [Suspect]
     Active Substance: SODIUM CHLORIDE
     Dosage: 40 ML (CYCLOPHOSPHAMIDE + 0.9% SODIUM CHLORIDE), EVERY 8 DAYS
     Route: 042
     Dates: start: 20251202, end: 20251209
  12. SODIUM CHLORIDE [Suspect]
     Active Substance: SODIUM CHLORIDE
     Dosage: 20 ML, QD (BEVACIZUMAB + 0.9% SODIUM CHLORIDE)
     Route: 034
     Dates: start: 20251206, end: 20251206
  13. PREDNISONE ACETATE [Suspect]
     Active Substance: PREDNISONE ACETATE
     Indication: Diffuse large B-cell lymphoma
     Dosage: 90 MG, QD (D1-D5)
     Route: 048
     Dates: start: 20251202, end: 20251206

REACTIONS (5)
  - Myelosuppression [Recovering/Resolving]
  - Anaemia [Unknown]
  - White blood cell count decreased [Recovering/Resolving]
  - Granulocytopenia [Unknown]
  - Platelet count decreased [Unknown]

NARRATIVE: CASE EVENT DATE: 20251213
